FAERS Safety Report 10050697 (Version 1)
Quarter: 2014Q2

REPORT INFORMATION
  Report Type: Spontaneous
  Country: US (occurrence: US)
  Receive Date: 20140401
  Receipt Date: 20140401
  Transmission Date: 20141212
  Serious: No
  Sender: FDA-Public Use
  Company Number: US-ASTRAZENECA-2013SE68469

PATIENT
  Age: 54 Year
  Sex: Female
  Weight: 95.3 kg

DRUGS (7)
  1. NEXIUM [Suspect]
     Indication: GASTROOESOPHAGEAL REFLUX DISEASE
     Route: 048
     Dates: start: 201305, end: 201308
  2. OMEPRAZOLE [Suspect]
     Indication: GASTROOESOPHAGEAL REFLUX DISEASE
     Route: 048
     Dates: start: 20130910
  3. HYDROCLORTHIAZIDE [Concomitant]
     Indication: BLOOD PRESSURE ABNORMAL
     Route: 048
     Dates: start: 2010
  4. CLONIPINE [Concomitant]
     Indication: ANXIETY
     Route: 048
  5. PAXIL [Concomitant]
     Indication: DEPRESSION
     Route: 048
     Dates: start: 201307
  6. METHADONE [Concomitant]
     Route: 048
     Dates: start: 1993
  7. LEXAPRO [Concomitant]

REACTIONS (7)
  - Weight decreased [Unknown]
  - Chest pain [Unknown]
  - Discomfort [Unknown]
  - Flatulence [Unknown]
  - Eructation [Unknown]
  - Middle insomnia [Unknown]
  - Intentional product misuse [Unknown]
